FAERS Safety Report 7685016-4 (Version None)
Quarter: 2011Q3

REPORT INFORMATION
  Report Type: 
  Country: None (occurrence: None)
  Receive Date: 20110816
  Receipt Date: 20110802
  Transmission Date: 20111222
  Serious: No
  Sender: FDA-Public Use
  Company Number: US-JNJFOC-20110802120

PATIENT
  Age: 15 Year
  Sex: Male
  Weight: 79.38 kg

DRUGS (2)
  1. INVEGA [Suspect]
     Indication: OFF LABEL USE
     Route: 048
  2. SERTRALINE HYDROCHLORIDE [Concomitant]
     Route: 048

REACTIONS (2)
  - OFF LABEL USE [None]
  - SEMEN VOLUME DECREASED [None]
